FAERS Safety Report 25119515 (Version 1)
Quarter: 2025Q1

REPORT INFORMATION
  Report Type: Spontaneous
  Country: FR (occurrence: FR)
  Receive Date: 20250325
  Receipt Date: 20250325
  Transmission Date: 20250408
  Serious: Yes (Disabling, Other)
  Sender: FERRING
  Company Number: FR-FERRINGPH-2023FE05924

PATIENT

DRUGS (2)
  1. FIRMAGON [Suspect]
     Active Substance: DEGARELIX ACETATE
     Indication: Prostate cancer
     Dosage: 80 MG, 1 DF MONTHLY
     Route: 065
     Dates: start: 202307, end: 20231021
  2. FIRMAGON [Suspect]
     Active Substance: DEGARELIX ACETATE
     Route: 065
     Dates: start: 202306, end: 202306

REACTIONS (5)
  - Gait disturbance [Not Recovered/Not Resolved]
  - Musculoskeletal pain [Not Recovered/Not Resolved]
  - Dyspnoea [Not Recovered/Not Resolved]
  - Rash macular [Recovered/Resolved]
  - Weight increased [Not Recovered/Not Resolved]

NARRATIVE: CASE EVENT DATE: 20230601
